FAERS Safety Report 5594566-6 (Version None)
Quarter: 2008Q1

REPORT INFORMATION
  Report Type: 
  Country: None (occurrence: None)
  Receive Date: 20080117
  Receipt Date: 20080109
  Transmission Date: 20080703
  Serious: Yes (Hospitalization, Other)
  Sender: FDA-Public Use
  Company Number: US-BRISTOL-MYERS SQUIBB COMPANY-13939319

PATIENT
  Age: 60 Year
  Sex: Female
  Weight: 75 kg

DRUGS (16)
  1. ERBITUX [Suspect]
     Indication: COLON CANCER METASTATIC
     Dates: start: 20070101, end: 20070410
  2. MORPHINE SULFATE [Suspect]
     Indication: PAIN
  3. ARANESP [Suspect]
     Indication: ANAEMIA OF MALIGNANT DISEASE
     Route: 058
     Dates: start: 20070226, end: 20070410
  4. CAMPTOSAR [Suspect]
     Indication: COLON CANCER METASTATIC
     Route: 065
     Dates: start: 20070101, end: 20070310
  5. ZOFRAN [Concomitant]
     Route: 048
     Dates: start: 20051108
  6. SENOKOT [Concomitant]
     Indication: DIARRHOEA
     Route: 048
     Dates: start: 20070202
  7. PROTONIX [Concomitant]
     Route: 048
     Dates: start: 20061130
  8. COMPAZINE [Concomitant]
     Route: 048
     Dates: start: 20051108
  9. REGLAN [Concomitant]
     Route: 048
     Dates: start: 20051028
  10. MS CONTIN [Concomitant]
     Route: 048
     Dates: start: 20061226
  11. KYTRIL [Concomitant]
     Route: 048
     Dates: start: 20070129
  12. LOMOTIL [Concomitant]
     Route: 048
     Dates: start: 20070410
  13. DECADRON [Concomitant]
     Route: 042
     Dates: start: 20070108
  14. MSIR [Concomitant]
     Route: 048
     Dates: start: 20070406
  15. BENADRYL [Concomitant]
     Route: 042
     Dates: start: 20070410
  16. NEURONTIN [Concomitant]
     Route: 048
     Dates: start: 20070703

REACTIONS (9)
  - ABDOMINAL DISTENSION [None]
  - ACCIDENTAL OVERDOSE [None]
  - ASTHENIA [None]
  - HAEMATURIA [None]
  - HYPOTENSION [None]
  - JAUNDICE [None]
  - NEUTROPENIA [None]
  - PANCYTOPENIA [None]
  - TACHYCARDIA [None]
